FAERS Safety Report 8223273-6 (Version None)
Quarter: 2012Q1

REPORT INFORMATION
  Report Type: 
  Country: None (occurrence: None)
  Receive Date: 20120321
  Receipt Date: 20101018
  Transmission Date: 20120608
  Serious: Yes (Other)
  Sender: FDA-Public Use
  Company Number: CA-ROCHE-1048926

PATIENT
  Sex: Female
  Weight: 65.83 kg

DRUGS (15)
  1. FOSAMAX [Concomitant]
  2. LEUCOVORIN CALCIUM [Concomitant]
  3. MABTHERA [Suspect]
     Indication: RHEUMATOID ARTHRITIS
     Route: 042
     Dates: start: 20090216, end: 20120222
  4. VITAMIN D [Concomitant]
  5. DOXYCYCLINE [Concomitant]
  6. SOLUCORT [Concomitant]
     Route: 042
     Dates: start: 20120222, end: 20120222
  7. METHOTREXATE [Concomitant]
  8. DIPHENHYDRAMINE HCL [Concomitant]
     Route: 048
     Dates: start: 20120222, end: 20120222
  9. NEXIUM [Concomitant]
  10. CALCIUM CARBONATE [Concomitant]
  11. COVASTIN [Concomitant]
  12. ACETAMINOPHEN [Concomitant]
     Route: 048
     Dates: start: 20120222, end: 20120222
  13. CELEBREX [Concomitant]
  14. TYLENOL W/ CODEINE NO. 3 [Concomitant]
  15. OXYCONTIN [Concomitant]

REACTIONS (2)
  - JOINT ARTHROPLASTY [None]
  - MULTIPLE MYELOMA [None]
